FAERS Safety Report 6680100-6 (Version None)
Quarter: 2010Q2

REPORT INFORMATION
  Report Type: 
  Country: None (occurrence: None)
  Receive Date: 20100413
  Receipt Date: 20100331
  Transmission Date: 20101027
  Serious: Yes (Other)
  Sender: FDA-Public Use
  Company Number: PHHY2009JP12348

PATIENT
  Sex: Male
  Weight: 56 kg

DRUGS (13)
  1. NEORAL [Suspect]
     Indication: HEART TRANSPLANT
     Dosage: 180 MG/DAY
     Route: 048
     Dates: start: 20040207
  2. NEORAL [Suspect]
     Dosage: 160 MG/DAY
     Route: 048
     Dates: start: 20080726
  3. NEORAL [Suspect]
     Dosage: 140 MG/DAY
     Route: 048
     Dates: start: 20080729
  4. CERTICAN [Suspect]
     Indication: HEART TRANSPLANT
     Dosage: 1.5 MG/DAY
     Route: 048
     Dates: start: 20080724
  5. CERTICAN [Suspect]
     Dosage: 1.75 MG/DAY
     Route: 048
     Dates: start: 20080808, end: 20080829
  6. CERTICAN [Suspect]
     Dosage: 0.5 MG/DAY
     Route: 048
     Dates: start: 20080903
  7. CERTICAN [Suspect]
     Dosage: 1.25 MG/DAY
     Route: 048
     Dates: start: 20080926
  8. CELLCEPT [Suspect]
     Indication: HEART TRANSPLANT
     Dosage: UNK
     Route: 048
     Dates: start: 20040209, end: 20080723
  9. PREDONINE [Suspect]
     Indication: HEART TRANSPLANT
     Dosage: UNK
     Route: 048
     Dates: start: 20040201, end: 20070101
  10. CARBAMAZEPINE [Concomitant]
  11. NORVASC [Concomitant]
     Indication: HYPERTENSION
     Dosage: UNK
     Route: 048
  12. VALGANCICLOVIR HCL [Concomitant]
     Indication: INFECTION PROPHYLAXIS
  13. COTRIM [Concomitant]
     Indication: ANTIFUNGAL PROPHYLAXIS

REACTIONS (9)
  - CORONARY ARTERY DISEASE [None]
  - CYTOMEGALOVIRUS INFECTION [None]
  - EPSTEIN-BARR VIRUS INFECTION [None]
  - HEART TRANSPLANT REJECTION [None]
  - IMMUNOSUPPRESSANT DRUG LEVEL DECREASED [None]
  - INTERLEUKIN-2 RECEPTOR INCREASED [None]
  - LEUKOPENIA [None]
  - LYMPHOMA [None]
  - SNAKE BITE [None]
